FAERS Safety Report 8381380-1 (Version None)
Quarter: 2012Q2

REPORT INFORMATION
  Report Type: 
  Country: None (occurrence: None)
  Receive Date: 20120523
  Receipt Date: 20120521
  Transmission Date: 20120825
  Serious: Yes (Death, Hospitalization)
  Sender: FDA-Public Use
  Company Number: PHHY2012MY043284

PATIENT
  Age: 35 Year
  Sex: Male

DRUGS (1)
  1. ALLOPURINOL [Suspect]
     Indication: RENAL IMPAIRMENT
     Dosage: 200 MG, QD

REACTIONS (6)
  - ENCEPHALOPATHY [None]
  - DRUG RASH WITH EOSINOPHILIA AND SYSTEMIC SYMPTOMS [None]
  - RASH MACULAR [None]
  - PYREXIA [None]
  - JAUNDICE [None]
  - MULTI-ORGAN FAILURE [None]
